FAERS Safety Report 6396823-2 (Version None)
Quarter: 2009Q4

REPORT INFORMATION
  Report Type: 
  Country: None (occurrence: None)
  Receive Date: 20091012
  Receipt Date: 20091009
  Transmission Date: 20100525
  Serious: Yes (Other)
  Sender: FDA-Public Use
  Company Number: TN-ROXANE LABORATORIES, INC.-2009-RO-01034RO

PATIENT
  Age: 45 Year
  Sex: Female

DRUGS (2)
  1. AZATHIOPRINE [Suspect]
     Indication: CROHN'S DISEASE
  2. DALIBOUR [Concomitant]
     Indication: SKIN HYPERPIGMENTATION

REACTIONS (3)
  - DYSGEUSIA [None]
  - HYPERKERATOSIS [None]
  - SKIN HYPERPIGMENTATION [None]
